FAERS Safety Report 8095371-1 (Version None)
Quarter: 2012Q1

REPORT INFORMATION
  Report Type: 
  Country: None (occurrence: None)
  Receive Date: 20120125
  Receipt Date: 20120119
  Transmission Date: 20120608
  Serious: Yes (Other)
  Sender: FDA-Public Use
  Company Number: ACO_28985_2012

PATIENT
  Age: 56 Year
  Sex: Female

DRUGS (7)
  1. AMPYRA [Suspect]
     Indication: PRODUCT USED FOR UNKNOWN INDICATION
     Dosage: 10 MG, BID, ORAL
     Route: 048
     Dates: start: 20100501, end: 20111219
  2. AMBIEN [Concomitant]
  3. TRAMADOL HCL [Concomitant]
  4. CYMBALTA [Concomitant]
  5. TIAZAC [Concomitant]
  6. ANTIHYPERTENSIVES (ANTIHYPERTENSIVES) [Concomitant]
  7. XANAX [Concomitant]

REACTIONS (3)
  - DRUG ADMINISTRATION ERROR [None]
  - GRAND MAL CONVULSION [None]
  - WRONG TECHNIQUE IN DRUG USAGE PROCESS [None]
